FAERS Safety Report 8854994 (Version 2)
Quarter: 2012Q4

REPORT INFORMATION
  Report Type: 
  Country: JP (occurrence: JP)
  Receive Date: 20121023
  Receipt Date: 20121107
  Transmission Date: 20130627
  Serious: Yes (Hospitalization, Other)
  Sender: FDA-Public Use
  Company Number: JP-ASTELLAS-2012JP009944

PATIENT
  Age: 85 Year
  Sex: Female

DRUGS (4)
  1. VESICARE [Suspect]
     Indication: HYPERTONIC BLADDER
     Dosage: 5 mg, UID/QD
     Route: 048
  2. VESICARE [Suspect]
     Route: 048
  3. CARDIOVASCULAR SYSTEM [Concomitant]
     Route: 048
  4. CARDIOVASCULAR SYSTEM [Concomitant]
     Route: 048

REACTIONS (2)
  - Ileus paralytic [Recovering/Resolving]
  - Constipation [Recovering/Resolving]
